FAERS Safety Report 5427168-2 (Version None)
Quarter: 2007Q3

REPORT INFORMATION
  Report Type: 
  Country: None (occurrence: None)
  Receive Date: 20070828
  Receipt Date: 20070816
  Transmission Date: 20080115
  Serious: Yes (Other)
  Sender: FDA-Public Use
  Company Number: PHBS2007EC13860

PATIENT
  Age: 69 Year

DRUGS (7)
  1. METFORMIN HCL [Concomitant]
  2. ACTOS ^LILLY^ [Concomitant]
  3. AERO-OM [Concomitant]
  4. URSODIOL [Concomitant]
  5. OMEPRAZOLE [Concomitant]
     Dosage: 20 MG, BID
  6. ESPASMOMEC [Concomitant]
     Indication: COLITIS
  7. ZELNORM [Suspect]
     Indication: FLATULENCE
     Dosage: 6 MG, BID
     Route: 048
     Dates: start: 20070807, end: 20070813

REACTIONS (4)
  - ARRHYTHMIA [None]
  - CHEST PAIN [None]
  - HYPERTENSION [None]
  - PALPITATIONS [None]
